FAERS Safety Report 8923544 (Version 1)
Quarter: 2012Q4

REPORT INFORMATION
  Report Type: 
  Country: GB (occurrence: GB)
  Receive Date: 20121123
  Receipt Date: 20121123
  Transmission Date: 20130627
  Serious: Yes (Other)
  Sender: FDA-Public Use
  Company Number: GB-PFIZER INC-2012286290

PATIENT
  Age: 59 Year
  Sex: Female
  Weight: 61.68 kg

DRUGS (1)
  1. METRONIDAZOLE [Suspect]
     Indication: DENTAL ABSCESS
     Dosage: 200 mg
     Route: 048
     Dates: start: 20121101, end: 20121103

REACTIONS (5)
  - Headache [Not Recovered/Not Resolved]
  - Somnolence [Not Recovered/Not Resolved]
  - Musculoskeletal stiffness [Not Recovered/Not Resolved]
  - Dizziness [Not Recovered/Not Resolved]
  - Drug ineffective [Unknown]
